FAERS Safety Report 4509586-X (Version None)
Quarter: 2004Q4

REPORT INFORMATION
  Report Type: 
  Country: None (occurrence: None)
  Receive Date: 20041119
  Receipt Date: 20041028
  Transmission Date: 20050328
  Serious: Yes (Other)
  Sender: FDA-Public Use
  Company Number: USA041082634

PATIENT
  Age: 95 Year
  Sex: Female
  Weight: 43 kg

DRUGS (5)
  1. FORTEO [Suspect]
     Indication: OSTEOPOROSIS
     Dates: start: 20041020
  2. VASOTEC [Concomitant]
  3. CARDIZEM [Concomitant]
  4. CALCIUM CARBONATE [Concomitant]
  5. CALCIUM CARBONATE W/MAGNESIUM [Concomitant]

REACTIONS (6)
  - ARRHYTHMIA [None]
  - DIARRHOEA [None]
  - DIZZINESS [None]
  - FEELING ABNORMAL [None]
  - SOMNOLENCE [None]
  - VOMITING [None]
